FAERS Safety Report 6763281-5 (Version None)
Quarter: 2010Q2

REPORT INFORMATION
  Report Type: 
  Country: None (occurrence: None)
  Receive Date: 20100608
  Receipt Date: 20100608
  Transmission Date: 20101027
  Serious: Yes (Hospitalization)
  Sender: FDA-Public Use
  Company Number: None

PATIENT
  Sex: Male
  Weight: 65.8 kg

DRUGS (1)
  1. TARCEVA [Suspect]
     Dosage: 14550 MG

REACTIONS (16)
  - ACUTE MYOCARDIAL INFARCTION [None]
  - ACUTE RESPIRATORY FAILURE [None]
  - HYPOPHAGIA [None]
  - HYPOTENSION [None]
  - HYPOXIA [None]
  - MALAISE [None]
  - MYOCARDIAL ISCHAEMIA [None]
  - NO THERAPEUTIC RESPONSE [None]
  - NOSOCOMIAL INFECTION [None]
  - PNEUMONIA [None]
  - PULMONARY OEDEMA [None]
  - RENAL FAILURE ACUTE [None]
  - SEPSIS [None]
  - SINUS TACHYCARDIA [None]
  - TACHYPNOEA [None]
  - URINARY TRACT INFECTION [None]
